FAERS Safety Report 6371657-3 (Version None)
Quarter: 2009Q3

REPORT INFORMATION
  Report Type: 
  Country: None (occurrence: None)
  Receive Date: 20090923
  Receipt Date: 20080410
  Transmission Date: 20100115
  Serious: Yes (Other)
  Sender: FDA-Public Use
  Company Number: US-ASTRAZENECA-2008UW01090

PATIENT
  Age: 509 Month
  Sex: Male
  Weight: 72.6 kg

DRUGS (10)
  1. SEROQUEL [Suspect]
     Indication: AGITATION
     Route: 048
     Dates: start: 20060101, end: 20061101
  2. SEROQUEL [Suspect]
     Dosage: 25 MG - 50 MG
     Route: 048
     Dates: start: 20060213
  3. GEODON [Concomitant]
     Dates: start: 20060101
  4. RISPERDAL [Concomitant]
     Dates: start: 20070101
  5. ZYPREXA [Concomitant]
     Dates: start: 20070101
  6. BUSPAR [Concomitant]
  7. TRILEPTAL [Concomitant]
     Dates: start: 20060101
  8. LUNESTA [Concomitant]
     Dosage: 2 MG - 3 MG
     Dates: start: 20061211
  9. MIRTAZAPINE [Concomitant]
     Dosage: 15 MG - 30 MG
     Dates: start: 20060223
  10. LEVEMIR [Concomitant]
     Dates: start: 20061006

REACTIONS (6)
  - BLOOD CHOLESTEROL INCREASED [None]
  - BLOOD TRIGLYCERIDES INCREASED [None]
  - DIABETES MELLITUS [None]
  - DIABETIC KETOACIDOSIS [None]
  - HYPERTENSION [None]
  - TYPE 2 DIABETES MELLITUS [None]
